APPROVED DRUG PRODUCT: RISPERIDONE
Active Ingredient: RISPERIDONE
Strength: 4MG
Dosage Form/Route: TABLET, ORALLY DISINTEGRATING;ORAL
Application: A077328 | Product #005 | TE Code: AB
Applicant: SENORES PHARMACEUTICALS INC
Approved: Nov 30, 2009 | RLD: No | RS: No | Type: RX